FAERS Safety Report 21387249 (Version 1)
Quarter: 2022Q3

REPORT INFORMATION
  Report Type: Spontaneous
  Country: US (occurrence: US)
  Receive Date: 20220928
  Receipt Date: 20220928
  Transmission Date: 20221026
  Serious: Yes (Hospitalization, Other)
  Sender: FDA-Public Use
  Company Number: US-LUPIN PHARMACEUTICALS INC.-2022-11445

PATIENT
  Age: 7 Year
  Sex: Male

DRUGS (2)
  1. CEPHALEXIN [Suspect]
     Active Substance: CEPHALEXIN
     Indication: Osteomyelitis
     Dosage: UNK UNK, TID, RECEIVED A 6-WEEK COURSE
     Route: 065
  2. CEPHALEXIN [Suspect]
     Active Substance: CEPHALEXIN
     Indication: Arthritis bacterial

REACTIONS (2)
  - Arthritis reactive [Recovered/Resolved]
  - Clostridium difficile colitis [Recovered/Resolved]
